FAERS Safety Report 16919790 (Version 1)
Quarter: 2019Q4

REPORT INFORMATION
  Report Type: Spontaneous
  Country: AU (occurrence: AU)
  Receive Date: 20191015
  Receipt Date: 20191015
  Transmission Date: 20200122
  Serious: Yes (Other)
  Sender: FDA-Public Use
  Company Number: AU-MYLANLABS-2019M1096170

PATIENT
  Sex: Male

DRUGS (1)
  1. CLOZARIL [Suspect]
     Active Substance: CLOZAPINE
     Indication: SCHIZOPHRENIA
     Dosage: 75 MILLIGRAM
     Route: 048
     Dates: start: 20190927

REACTIONS (3)
  - C-reactive protein increased [Unknown]
  - Influenza like illness [Unknown]
  - Tachycardia [Recovering/Resolving]

NARRATIVE: CASE EVENT DATE: 2019
